FAERS Safety Report 9887463 (Version 1)
Quarter: 2014Q1

REPORT INFORMATION
  Report Type: Spontaneous
  Country: JP (occurrence: None)
  Receive Date: 20140206
  Receipt Date: 20140206
  Transmission Date: 20141002
  Serious: Yes (Hospitalization)
  Sender: FDA-Public Use
  Company Number: JP-014567

PATIENT
  Age: 70 Year
  Sex: Male

DRUGS (1)
  1. DEGARELIX (GONAX) 240 MG [Suspect]
     Indication: PROSTATE CANCER
     Route: 058
     Dates: start: 20140117, end: 20140117

REACTIONS (2)
  - Abdominal pain [None]
  - Abdominal tenderness [None]
